FAERS Safety Report 5365390-4 (Version None)
Quarter: 2007Q2

REPORT INFORMATION
  Report Type: 
  Country: None (occurrence: None)
  Receive Date: 20070621
  Receipt Date: 20070612
  Transmission Date: 20071010
  Serious: Yes (Other)
  Sender: FDA-Public Use
  Company Number: IT-ELI_LILLY_AND_COMPANY-IT200706003745

PATIENT
  Age: 51 Year
  Sex: Female

DRUGS (2)
  1. GEMZAR [Suspect]
     Indication: ENDOMETRIAL CANCER RECURRENT
     Dosage: 1000 MG/M2, UNK
     Dates: start: 20070412
  2. CARBOPLATIN [Concomitant]
     Indication: ENDOMETRIAL CANCER RECURRENT
     Dates: start: 20070412

REACTIONS (1)
  - THROMBOCYTHAEMIA [None]
